FAERS Safety Report 4836971-9 (Version None)
Quarter: 2005Q4

REPORT INFORMATION
  Report Type: 
  Country: None (occurrence: None)
  Receive Date: 20051121
  Receipt Date: 20051109
  Transmission Date: 20060501
  Serious: Yes (Other)
  Sender: FDA-Public Use
  Company Number: DE-2005-008047

PATIENT
  Age: 47 Year
  Sex: Female
  Weight: 57 kg

DRUGS (2)
  1. YASMIN [Suspect]
     Dosage: ORAL
     Route: 048
     Dates: start: 20040401, end: 20050531
  2. KERLONE [Concomitant]

REACTIONS (9)
  - BLOOD PRESSURE SYSTOLIC DECREASED [None]
  - CREATINE URINE ABNORMAL [None]
  - CREATININE RENAL CLEARANCE DECREASED [None]
  - DRUG INTERACTION [None]
  - FATIGUE [None]
  - GLOMERULAR FILTRATION RATE DECREASED [None]
  - INFECTION IN AN IMMUNOCOMPROMISED HOST [None]
  - MIGRAINE [None]
  - PROTEIN URINE PRESENT [None]
